FAERS Safety Report 22085346 (Version 1)
Quarter: 2023Q1

REPORT INFORMATION
  Report Type: Spontaneous
  Country: US (occurrence: None)
  Receive Date: 20230309
  Receipt Date: 20230309
  Transmission Date: 20230418
  Serious: Yes (Other)
  Sender: FDA-Public Use
  Company Number: None

PATIENT
  Sex: Female

DRUGS (1)
  1. SANDOSTATIN LAR DEPOT [Suspect]
     Active Substance: OCTREOTIDE ACETATE
     Dosage: FREQUENCY : WEEKLY;?
     Route: 058
     Dates: start: 20221102

REACTIONS (3)
  - Nausea [None]
  - Procedural pain [None]
  - Tumour excision [None]
